FAERS Safety Report 5801747-2 (Version None)
Quarter: 2008Q2

REPORT INFORMATION
  Report Type: 
  Country: None (occurrence: None)
  Receive Date: 20080626
  Receipt Date: 20080107
  Transmission Date: 20081010
  Serious: Yes (Other)
  Sender: FDA-Public Use
  Company Number: 539992

PATIENT
  Sex: Male

DRUGS (1)
  1. XELODA [Suspect]
     Indication: COLON CANCER STAGE IV

REACTIONS (6)
  - COLON CANCER STAGE IV [None]
  - DYSGEUSIA [None]
  - EYE DISORDER [None]
  - INSOMNIA [None]
  - METASTASES TO STOMACH [None]
  - NAUSEA [None]
